FAERS Safety Report 21172427 (Version 1)
Quarter: 2022Q3

REPORT INFORMATION
  Report Type: Spontaneous
  Country: US (occurrence: None)
  Receive Date: 20220803
  Receipt Date: 20220803
  Transmission Date: 20221027
  Serious: Yes (Other)
  Sender: FDA-Public Use
  Company Number: None

PATIENT
  Age: 26 Year
  Sex: Male
  Weight: 72 kg

DRUGS (1)
  1. CABOTEGRAVIR [Suspect]
     Active Substance: CABOTEGRAVIR
     Dosage: 600 MG EVERY 2 MONTHS INTRAMUSCULAR
     Route: 030
     Dates: start: 20220614

REACTIONS (9)
  - Pain in extremity [None]
  - Neuralgia [None]
  - Arthralgia [None]
  - Pain in extremity [None]
  - Pain [None]
  - Pain [None]
  - Gait disturbance [None]
  - Product distribution issue [None]
  - Therapy interrupted [None]

NARRATIVE: CASE EVENT DATE: 20220617
